FAERS Safety Report 25256556 (Version 2)
Quarter: 2025Q2

REPORT INFORMATION
  Report Type: Report from Study
  Country: GB (occurrence: GB)
  Receive Date: 20250430
  Receipt Date: 20250609
  Transmission Date: 20250716
  Serious: Yes (Death, Life-Threatening, Hospitalization, Other)
  Sender: BAXTER
  Company Number: GB-BAXTER-2025BAX014448

PATIENT
  Sex: Male

DRUGS (7)
  1. SODIUM CHLORIDE [Suspect]
     Active Substance: SODIUM CHLORIDE
     Route: 065
  2. SODIUM CHLORIDE [Suspect]
     Active Substance: SODIUM CHLORIDE
     Route: 065
  3. CERNEVIT [Suspect]
     Active Substance: VITAMINS
     Route: 065
  4. IRON\MINERALS\POTASSIUM IOD\SODIUM FLUORIDE\SODIUM MOLYBDATE\SODIUM SE [Suspect]
     Active Substance: IRON\MINERALS\POTASSIUM IOD\SODIUM FLUORIDE\SODIUM MOLYBDATE\SODIUM SELENITE\ZINC
     Route: 065
  5. UNSPECIFIED INGREDIENT [Suspect]
     Active Substance: UNSPECIFIED INGREDIENT
     Route: 065
  6. WATER FOR INJECTION [Suspect]
     Active Substance: WATER
     Route: 065
  7. DIETARY SUPPLEMENT [Suspect]
     Active Substance: DIETARY SUPPLEMENT
     Route: 065

REACTIONS (5)
  - Death [Fatal]
  - Body temperature abnormal [Unknown]
  - Ocular icterus [Unknown]
  - Lower respiratory tract infection [Unknown]
  - General physical health deterioration [Unknown]
